FAERS Safety Report 7663052-1 (Version None)
Quarter: 2011Q3

REPORT INFORMATION
  Report Type: 
  Country: None (occurrence: None)
  Receive Date: 20110805
  Receipt Date: 20100915
  Transmission Date: 20111222
  Serious: No
  Sender: FDA-Public Use
  Company Number: US-ABBOTT-10P-163-0670906-00

PATIENT
  Sex: Female
  Weight: 86.714 kg

DRUGS (4)
  1. NIASPAN [Suspect]
     Indication: BLOOD TRIGLYCERIDES
  2. MUSCLE RELAXANTS [Concomitant]
     Indication: PRODUCT USED FOR UNKNOWN INDICATION
  3. NIASPAN [Suspect]
     Indication: LOW DENSITY LIPOPROTEIN INCREASED
     Dosage: AT BED TIME
     Dates: start: 20090101
  4. SIMVASTATIN [Concomitant]
     Indication: PRODUCT USED FOR UNKNOWN INDICATION

REACTIONS (1)
  - FLUSHING [None]
